FAERS Safety Report 5869578-5 (Version None)
Quarter: 2008Q3

REPORT INFORMATION
  Report Type: 
  Country: None (occurrence: None)
  Receive Date: 20080904
  Receipt Date: 20080827
  Transmission Date: 20090109
  Serious: Yes (Hospitalization)
  Sender: FDA-Public Use
  Company Number: DE-AMGEN-US286195

PATIENT
  Sex: Female
  Weight: 61.3 kg

DRUGS (8)
  1. ENBREL [Suspect]
     Indication: JUVENILE ARTHRITIS
     Dosage: UNKNOWN
     Route: 058
     Dates: start: 20031001
  2. LANTAREL [Concomitant]
     Indication: JUVENILE ARTHRITIS
     Dosage: UNKNOWN
     Route: 058
     Dates: start: 20030701, end: 20050827
  3. LANTAREL [Concomitant]
     Dosage: UNKNOWN
     Route: 058
     Dates: start: 20061017, end: 20080301
  4. LANTAREL [Concomitant]
     Route: 058
     Dates: start: 20080601
  5. NAPROXEN [Concomitant]
     Indication: JUVENILE ARTHRITIS
     Route: 048
     Dates: start: 20030501, end: 20050827
  6. NAPROXEN [Concomitant]
     Route: 048
     Dates: start: 20060801, end: 20080301
  7. NAPROXEN [Concomitant]
     Dosage: WHEN NEEDED
     Route: 048
     Dates: start: 20080301, end: 20080501
  8. NAPROXEN [Concomitant]
     Route: 048
     Dates: start: 20080514

REACTIONS (2)
  - ARTHRITIS [None]
  - CONDITION AGGRAVATED [None]
